FAERS Safety Report 17693803 (Version 1)
Quarter: 2020Q2

REPORT INFORMATION
  Report Type: Spontaneous
  Country: DE (occurrence: DE)
  Receive Date: 20200422
  Receipt Date: 20200422
  Transmission Date: 20200714
  Serious: Yes (Other)
  Sender: FDA-Public Use
  Company Number: NVSC2020DE103801

PATIENT
  Sex: Female

DRUGS (17)
  1. CANDESARTAN. [Suspect]
     Active Substance: CANDESARTAN
     Indication: PRODUCT USED FOR UNKNOWN INDICATION
     Dosage: 4 MG, QD
     Route: 065
  2. NIFEDIPIN [Suspect]
     Active Substance: NIFEDIPINE
     Dosage: 20 MG/ML, ONCE/SINGLE
     Route: 065
     Dates: start: 20200314
  3. BISOPROLOL [Suspect]
     Active Substance: BISOPROLOL
     Dosage: 0.5 DF, BID (2.5 MG)
     Route: 065
     Dates: start: 20200413
  4. ATORVASTATIN [Suspect]
     Active Substance: ATORVASTATIN
     Indication: PRODUCT USED FOR UNKNOWN INDICATION
     Dosage: 40 MG
     Route: 065
     Dates: start: 20200411
  5. SORMODREN [Suspect]
     Active Substance: BORNAPRINE HYDROCHLORIDE
     Dosage: 0.5 DF, BID (4 MG)
     Route: 065
     Dates: start: 20200413
  6. MULTAQ [Suspect]
     Active Substance: DRONEDARONE
     Dosage: 400 MG, QD
     Route: 065
     Dates: start: 20200413
  7. NIFEDIPIN [Suspect]
     Active Substance: NIFEDIPINE
     Indication: PRODUCT USED FOR UNKNOWN INDICATION
     Dosage: 20 MG/ML
     Route: 065
     Dates: start: 20200311
  8. NIFEDIPIN [Suspect]
     Active Substance: NIFEDIPINE
     Dosage: 20 MG/ML, ONCE/SINGLE
     Route: 065
     Dates: start: 20200413
  9. MULTAQ [Suspect]
     Active Substance: DRONEDARONE
     Indication: PRODUCT USED FOR UNKNOWN INDICATION
     Dosage: 400 MG
     Route: 065
     Dates: start: 20200411
  10. CANDESARTAN. [Suspect]
     Active Substance: CANDESARTAN
     Dosage: 8 MG, QD (DAILY AT 5 PM)
     Route: 065
     Dates: start: 20200407
  11. NIFEDIPIN [Suspect]
     Active Substance: NIFEDIPINE
     Dosage: 20 MG/ML
     Route: 065
     Dates: start: 20200411
  12. CANDESARTAN. [Suspect]
     Active Substance: CANDESARTAN
     Dosage: 0.5 DF, QD (HALF DOSAGE OF 8MG, DAILY AT 9 AM)
     Route: 065
     Dates: start: 20200407
  13. BISOPROLOL [Suspect]
     Active Substance: BISOPROLOL
     Indication: PRODUCT USED FOR UNKNOWN INDICATION
     Dosage: 2.5 MG
     Route: 065
  14. ATORVASTATIN [Suspect]
     Active Substance: ATORVASTATIN
     Dosage: 40 MG, QD
     Route: 065
     Dates: start: 20200413
  15. LIXIANA [Suspect]
     Active Substance: EDOXABAN TOSYLATE
     Indication: PRODUCT USED FOR UNKNOWN INDICATION
     Dosage: 60 MG
     Route: 065
     Dates: start: 20200411
  16. LIXIANA [Suspect]
     Active Substance: EDOXABAN TOSYLATE
     Dosage: 60 MG, QD
     Route: 065
     Dates: start: 20200413
  17. SORMODREN [Suspect]
     Active Substance: BORNAPRINE HYDROCHLORIDE
     Indication: PRODUCT USED FOR UNKNOWN INDICATION
     Dosage: 4 MG
     Route: 065
     Dates: start: 20200411

REACTIONS (2)
  - Blood pressure systolic increased [Unknown]
  - Drug interaction [Unknown]
